FAERS Safety Report 4469977-2 (Version None)
Quarter: 2004Q3

REPORT INFORMATION
  Report Type: 
  Country: None (occurrence: None)
  Receive Date: 20040920
  Receipt Date: 20040712
  Transmission Date: 20050211
  Serious: No
  Sender: FDA-Public Use
  Company Number: A-US2004-06796

PATIENT
  Age: 66 Year
  Sex: Male

DRUGS (11)
  1. TRACLEER [Suspect]
     Indication: PULMONARY HYPERTENSION
     Dosage: 62.5 MG, BID, ORAL
     Route: 048
     Dates: start: 20040707
  2. INSULIN [Concomitant]
  3. COREG [Concomitant]
  4. LASIX [Concomitant]
  5. BUPROPION (AMFEBUTAMONE) [Concomitant]
  6. ADVAIR DISKUS 100/50 [Concomitant]
  7. COUMADIN [Concomitant]
  8. ACIPHEX (AMINOPHENAZONE, BENZOCAINE, EPINEPHRINE HCL, HORSE CHESTNUT E [Concomitant]
  9. IMURAN [Concomitant]
  10. ENALAPRIL            (ENALAPRIL) [Concomitant]
  11. L-ARGININE [Concomitant]

REACTIONS (2)
  - OEDEMA [None]
  - WEIGHT INCREASED [None]
